FAERS Safety Report 23333536 (Version 1)
Quarter: 2023Q4

REPORT INFORMATION
  Report Type: Spontaneous
  Country: US (occurrence: US)
  Receive Date: 20231222
  Receipt Date: 20231222
  Transmission Date: 20240110
  Serious: No
  Sender: FDA-Public Use
  Company Number: US-CTI BIOPHARMA-2023US04231

PATIENT

DRUGS (13)
  1. VONJO [Suspect]
     Active Substance: PACRITINIB
     Indication: Myelofibrosis
     Dosage: 200 MG, BID
     Route: 048
     Dates: start: 20220416
  2. PREDNISONE [Concomitant]
     Active Substance: PREDNISONE
  3. TYLENOL [Concomitant]
     Active Substance: ACETAMINOPHEN
  4. CALCITRIOL [Concomitant]
     Active Substance: CALCITRIOL
  5. LEXAPRO [Concomitant]
     Active Substance: ESCITALOPRAM OXALATE
  6. LOPRESSOR HCT [Concomitant]
     Active Substance: HYDROCHLOROTHIAZIDE\METOPROLOL TARTRATE
  7. TORSEMIDE [Concomitant]
     Active Substance: TORSEMIDE
  8. METOPROLOL TARTRATE [Concomitant]
     Active Substance: METOPROLOL TARTRATE
  9. TESTOSTERONE CYPIONATE [Concomitant]
     Active Substance: TESTOSTERONE CYPIONATE
  10. LANTUS [Concomitant]
     Active Substance: INSULIN GLARGINE
  11. FEBUXOSTAT [Concomitant]
     Active Substance: FEBUXOSTAT
  12. FINASTERIDE [Concomitant]
     Active Substance: FINASTERIDE
  13. PANTOPRAZOLE [Concomitant]
     Active Substance: PANTOPRAZOLE

REACTIONS (5)
  - Splenomegaly [Unknown]
  - Wound [Unknown]
  - Fatigue [Unknown]
  - Platelet count decreased [Unknown]
  - Atrial fibrillation [Unknown]
